FAERS Safety Report 5162408-9 (Version None)
Quarter: 2006Q4

REPORT INFORMATION
  Report Type: 
  Country: None (occurrence: None)
  Receive Date: 20061128
  Receipt Date: 20061128
  Transmission Date: 20070319
  Serious: Yes (Death, Hospitalization)
  Sender: FDA-Public Use
  Company Number: None

PATIENT
  Age: 60 Year
  Sex: Male
  Weight: 84.8226 kg

DRUGS (10)
  1. ROCEPHIN [Suspect]
     Indication: PNEUMONIA
     Dosage: 2 GRAMS IV
     Route: 042
     Dates: start: 20060713, end: 20060723
  2. ACETAMINOPHEN/OXYCODONE TAB [Concomitant]
  3. FUROSEMIDE [Concomitant]
  4. HYDROXYZINE PAMOATE, CAP [Concomitant]
  5. LACTULOSE [Concomitant]
  6. LORAZEPAM [Concomitant]
  7. PROMETHAZINE [Concomitant]
  8. RISPERIDONE [Concomitant]
  9. SPIRONOLACTONE TAB [Concomitant]
  10. SULFAMETHOXAZOLE/TRIMETHOPRIM TAB [Concomitant]

REACTIONS (4)
  - CARDIOPULMONARY FAILURE [None]
  - PNEUMONIA [None]
  - RASH [None]
  - RENAL FAILURE ACUTE [None]
